FAERS Safety Report 8839842 (Version 1)
Quarter: 2012Q4

REPORT INFORMATION
  Report Type: 
  Country: US (occurrence: US)
  Receive Date: 20121015
  Receipt Date: 20121015
  Transmission Date: 20130627
  Serious: No
  Sender: FDA-Public Use
  Company Number: US-BRISTOL-MYERS SQUIBB COMPANY-16470791

PATIENT
  Age: 42 Year
  Sex: Female
  Weight: 57 kg

DRUGS (1)
  1. KENALOG-40 INJ [Suspect]
     Indication: DERMATITIS CONTACT
     Dosage: recieved injection on 6th or 7th Jul11
     Dates: start: 201107

REACTIONS (1)
  - Muscle atrophy [Unknown]
